FAERS Safety Report 6964447 (Version 3)
Quarter: 2012Q4

REPORT INFORMATION
  Report Type: 
  Country: US (occurrence: US)
  Receive Date: 20060818
  Receipt Date: 20121022
  Transmission Date: 20130627
  Serious: Yes (Other)
  Sender: FDA-Public Use
  Company Number: US-PFIZER INC-2006097950

PATIENT
  Age: 62 Year
  Sex: Female
  Weight: 68 kg

DRUGS (12)
  1. PROVERA [Suspect]
     Indication: MENOPAUSE
     Dosage: UNK
     Route: 048
     Dates: start: 1989, end: 1996
  2. PROVERA [Suspect]
     Indication: HORMONE REPLACEMENT THERAPY
  3. PREMARIN [Suspect]
     Indication: MENOPAUSE
     Dosage: UNK
     Route: 048
     Dates: start: 1989, end: 199202
  4. PREMARIN [Suspect]
     Indication: HORMONE REPLACEMENT THERAPY
  5. ESTRADIOL [Suspect]
     Indication: HORMONE REPLACEMENT THERAPY
     Dosage: UNK
     Route: 048
  6. CYCRIN [Suspect]
     Indication: HORMONE REPLACEMENT THERAPY
     Dosage: UNK
     Route: 048
  7. ESTRACE [Suspect]
     Indication: MENOPAUSE
     Dosage: UNK
     Route: 048
     Dates: start: 1994, end: 1997
  8. ESTRACE [Suspect]
     Indication: HORMONE REPLACEMENT THERAPY
  9. ESTRADIOL [Suspect]
     Indication: MENOPAUSE
     Dosage: UNK
     Route: 048
     Dates: start: 1994, end: 1999
  10. ESTRADIOL [Suspect]
     Indication: HORMONE REPLACEMENT THERAPY
  11. MEDROXYPROGESTERONE ACETATE [Suspect]
     Indication: MENOPAUSE
     Dosage: UNK
     Route: 048
     Dates: start: 1997, end: 1999
  12. MEDROXYPROGESTERONE ACETATE [Suspect]
     Indication: HORMONE REPLACEMENT THERAPY

REACTIONS (1)
  - Invasive ductal breast carcinoma [Unknown]
